FAERS Safety Report 17226396 (Version 3)
Quarter: 2020Q4

REPORT INFORMATION
  Report Type: Spontaneous
  Country: US (occurrence: US)
  Receive Date: 20200102
  Receipt Date: 20201016
  Transmission Date: 20210113
  Serious: Yes (Hospitalization, Other)
  Sender: FDA-Public Use
  Company Number: US-TAKEDA-2019TUS074253

PATIENT

DRUGS (26)
  1. AZOR                               /00595201/ [Concomitant]
     Active Substance: ALPRAZOLAM
  2. ULORIC [Suspect]
     Active Substance: FEBUXOSTAT
     Dosage: 40 MILLIGRAM
     Route: 048
     Dates: start: 20170615, end: 20180314
  3. PROTONIX [Concomitant]
     Active Substance: PANTOPRAZOLE SODIUM
     Indication: ABDOMINAL DISCOMFORT
     Dosage: UNK UNK, QD
  4. NAPROXEN. [Concomitant]
     Active Substance: NAPROXEN
  5. ULORIC [Suspect]
     Active Substance: FEBUXOSTAT
     Indication: GOUT
     Dosage: 40 MILLIGRAM
     Route: 048
     Dates: start: 20150916, end: 20160719
  6. AFLURIA NOS [Concomitant]
     Active Substance: INFLUENZA VIRUS VACCINE TRIVALENT TYPE A+B AFLURIA
  7. ATORVASTATIN [Concomitant]
     Active Substance: ATORVASTATIN
  8. CITALOPRAM [Concomitant]
     Active Substance: CITALOPRAM HYDROBROMIDE
  9. DULOXETINE. [Concomitant]
     Active Substance: DULOXETINE
  10. GABAPENTIN. [Concomitant]
     Active Substance: GABAPENTIN
  11. PREDNISONE. [Concomitant]
     Active Substance: PREDNISONE
  12. ASPIRIN                            /00002701/ [Concomitant]
     Active Substance: ASPIRIN
     Indication: CARDIAC DISORDER
     Dosage: UNK, QD
  13. CYCLOBENZAPRINE. [Concomitant]
     Active Substance: CYCLOBENZAPRINE
  14. ALPRAZOLAM. [Concomitant]
     Active Substance: ALPRAZOLAM
     Indication: ANXIETY
     Dosage: UNK, QD
  15. COLCHICINE. [Concomitant]
     Active Substance: COLCHICINE
  16. PANTOPRAZOLE [Concomitant]
     Active Substance: PANTOPRAZOLE
  17. ACETAMINOPHEN AND CODEINE [Concomitant]
     Active Substance: ACETAMINOPHEN\CODEINE PHOSPHATE
  18. ACETAMINOPHEN W/HYDROCODONE [Concomitant]
     Active Substance: ACETAMINOPHEN\HYDROCODONE
  19. METOPROLOL. [Concomitant]
     Active Substance: METOPROLOL
  20. VITAMIN B12 [Concomitant]
     Active Substance: CYANOCOBALAMIN
  21. BRILINTA [Concomitant]
     Active Substance: TICAGRELOR
  22. FLUZONE                            /00780601/ [Concomitant]
     Active Substance: FLUCONAZOLE
  23. NITROGLYCERIN. [Concomitant]
     Active Substance: NITROGLYCERIN
  24. COLCRYS [Concomitant]
     Active Substance: COLCHICINE
     Indication: GOUT
     Dosage: UNK, QD
  25. ALLOPURINOL. [Concomitant]
     Active Substance: ALLOPURINOL
     Indication: GOUT
     Dosage: UNK
     Dates: start: 2015, end: 2016
  26. ECONAZOLE. [Concomitant]
     Active Substance: ECONAZOLE NITRATE

REACTIONS (2)
  - Chest pain [Unknown]
  - Acute myocardial infarction [Not Recovered/Not Resolved]

NARRATIVE: CASE EVENT DATE: 20161230
